FAERS Safety Report 9065206 (Version 2)
Quarter: 2013Q1

REPORT INFORMATION
  Report Type: Report from Study
  Country: US (occurrence: US)
  Receive Date: 20130130
  Receipt Date: 20130225
  Transmission Date: 20140127
  Serious: Yes (Death, Other)
  Sender: FDA-Public Use
  Company Number: US-ABBOTT-13P-163-1041621-00

PATIENT
  Sex: Male
  Weight: 65.38 kg

DRUGS (5)
  1. HUMIRA [Suspect]
     Indication: PSORIASIS
     Dates: start: 20091118, end: 20101215
  2. HUMIRA [Suspect]
     Dates: start: 20101215, end: 20110427
  3. HUMIRA [Suspect]
     Dates: start: 20110427, end: 20111026
  4. HUMIRA [Suspect]
     Dates: start: 20111026, end: 20120118
  5. TACLONEX [Concomitant]
     Indication: PRODUCT USED FOR UNKNOWN INDICATION
     Dosage: AT BEDTIME
     Dates: start: 20080319, end: 20120118

REACTIONS (7)
  - Death [Fatal]
  - Interstitial lung disease [Unknown]
  - Disseminated tuberculosis [Unknown]
  - Tuberculosis of central nervous system [Unknown]
  - Depression [Unknown]
  - Suicide attempt [Unknown]
  - Immunosuppression [Unknown]
